FAERS Safety Report 7489687-7 (Version None)
Quarter: 2011Q2

REPORT INFORMATION
  Report Type: 
  Country: None (occurrence: None)
  Receive Date: 20110519
  Receipt Date: 20110510
  Transmission Date: 20111010
  Serious: No
  Sender: FDA-Public Use
  Company Number: US-BIOGENIDEC-2011BI017748

PATIENT
  Age: 38 Year
  Sex: Female

DRUGS (3)
  1. TYSABRI [Suspect]
     Indication: MULTIPLE SCLEROSIS
     Route: 042
     Dates: start: 20110208
  2. TYSABRI [Suspect]
     Route: 042
     Dates: start: 20081222, end: 20101012
  3. TYSABRI [Suspect]
     Route: 042
     Dates: start: 20101109

REACTIONS (1)
  - FATIGUE [None]
